FAERS Safety Report 5935396-2 (Version None)
Quarter: 2008Q4

REPORT INFORMATION
  Report Type: 
  Country: None (occurrence: None)
  Receive Date: 20081030
  Receipt Date: 20081020
  Transmission Date: 20090506
  Serious: Yes (Other)
  Sender: FDA-Public Use
  Company Number: FR-AMGEN-US315891

PATIENT
  Age: 45 Year
  Sex: Female

DRUGS (2)
  1. ENBREL [Suspect]
     Indication: PSORIASIS
     Route: 058
     Dates: start: 20071115
  2. NOVATREX [Suspect]
     Indication: PSORIASIS
     Dosage: 15 MG TOTAL WEEKLY
     Route: 048
     Dates: start: 20071101

REACTIONS (3)
  - PIGMENTATION DISORDER [None]
  - PSORIASIS [None]
  - SKIN LESION [None]
